FAERS Safety Report 7523247-4 (Version None)
Quarter: 2011Q2

REPORT INFORMATION
  Report Type: 
  Country: None (occurrence: None)
  Receive Date: 20110603
  Receipt Date: 20110519
  Transmission Date: 20111010
  Serious: Yes (Congenital Anomaly)
  Sender: FDA-Public Use
  Company Number: A0680501A

PATIENT
  Sex: Male
  Weight: 3 kg

DRUGS (9)
  1. PAXIL CR [Suspect]
     Indication: ANXIETY
     Dosage: 60MG PER DAY
     Route: 064
     Dates: start: 20060101, end: 20080101
  2. WELLBUTRIN [Concomitant]
     Route: 064
  3. PREVACID [Concomitant]
     Route: 064
  4. CELEXA [Concomitant]
     Route: 064
  5. REQUIP [Concomitant]
     Route: 064
  6. VITAMIN AND MINERAL PRENATAL SUPPLEMENT W/ FOLIC ACID CAP [Concomitant]
     Route: 064
  7. PAROXETINE HYDROCHLORIDE [Suspect]
     Indication: PANIC ATTACK
     Dosage: 20MG PER DAY
     Route: 064
     Dates: start: 20051121, end: 20060101
  8. PAXIL [Suspect]
     Indication: DEPRESSION
     Dosage: 60MG PER DAY
     Route: 064
     Dates: start: 20000101, end: 20060101
  9. FERROUS SULFATE TAB [Concomitant]
     Route: 064

REACTIONS (2)
  - DRUG EXPOSURE DURING PREGNANCY [None]
  - TALIPES [None]
